FAERS Safety Report 10199490 (Version 1)
Quarter: 2014Q2

REPORT INFORMATION
  Report Type: Spontaneous
  Country: US (occurrence: None)
  Receive Date: 20140523
  Receipt Date: 20140523
  Transmission Date: 20141212
  Serious: Yes (Life-Threatening, Hospitalization)
  Sender: FDA-Public Use
  Company Number: None

PATIENT
  Age: 49 Year
  Sex: Female
  Weight: 68.04 kg

DRUGS (1)
  1. VICTOZA 18 MG/3 ML NOVO NORDISK [Suspect]
     Indication: BLOOD GLUCOSE ABNORMAL
     Route: 058
     Dates: start: 20140508, end: 20140512

REACTIONS (4)
  - Vomiting [None]
  - Chest pain [None]
  - Diabetic ketoacidosis [None]
  - Blood glucose decreased [None]
